FAERS Safety Report 5342038-6 (Version None)
Quarter: 2007Q2

REPORT INFORMATION
  Report Type: 
  Country: None (occurrence: None)
  Receive Date: 20070530
  Receipt Date: 20070530
  Transmission Date: 20071010
  Serious: Yes (Hospitalization, Disabling)
  Sender: FDA-Public Use
  Company Number: None

PATIENT
  Age: 45 Year
  Sex: Male
  Weight: 102 kg

DRUGS (1)
  1. ROCURONIUM 10MG/ML ORGANON [Suspect]
     Indication: SURGERY
     Dosage: 50 MG ONCE IV BOLUS
     Route: 040

REACTIONS (3)
  - ENDOTRACHEAL INTUBATION COMPLICATION [None]
  - HYPOTENSION [None]
  - OBSTRUCTIVE AIRWAYS DISORDER [None]
